FAERS Safety Report 5996201-1 (Version None)
Quarter: 2008Q4

REPORT INFORMATION
  Report Type: 
  Country: None (occurrence: None)
  Receive Date: 20081212
  Receipt Date: 20081013
  Transmission Date: 20090506
  Serious: No
  Sender: FDA-Public Use
  Company Number: US-ABBOTT-08P-163-0481341-00

PATIENT
  Sex: Female
  Weight: 86.26 kg

DRUGS (10)
  1. HUMIRA [Suspect]
     Indication: CROHN'S DISEASE
     Route: 058
     Dates: start: 20081001
  2. PREDNISONE TAB [Concomitant]
     Indication: CROHN'S DISEASE
     Route: 048
     Dates: start: 20080801
  3. MERCAPTOPURINE [Concomitant]
     Indication: CROHN'S DISEASE
     Route: 048
     Dates: start: 19880101
  4. CONJUGATED ESTROGENS [Concomitant]
     Indication: DRUG USE FOR UNKNOWN INDICATION
     Route: 048
     Dates: start: 19950101
  5. PROTAONIX [Concomitant]
     Indication: GASTRIC DISORDER
     Route: 048
     Dates: start: 19930101
  6. TYLENOL W/ CODEINE NO. 4 [Concomitant]
     Indication: PAIN
     Route: 048
     Dates: start: 19880101
  7. IMODIUM [Concomitant]
     Indication: CROHN'S DISEASE
     Route: 048
     Dates: start: 20080915
  8. FORTAO [Concomitant]
     Indication: OSTEOPOROSIS
     Route: 050
  9. EFFEXOR [Concomitant]
     Indication: DEPRESSION
     Route: 048
     Dates: start: 19980101
  10. BUPROPION HCL [Concomitant]
     Indication: DEPRESSION
     Route: 048
     Dates: start: 20030101

REACTIONS (1)
  - ACCIDENTAL EXPOSURE [None]
